FAERS Safety Report 4443486-9 (Version None)
Quarter: 2004Q3

REPORT INFORMATION
  Report Type: 
  Country: None (occurrence: None)
  Receive Date: 20040903
  Receipt Date: 20040903
  Transmission Date: 20050211
  Serious: Yes (Hospitalization)
  Sender: FDA-Public Use
  Company Number: None

PATIENT
  Age: 65 Year
  Sex: Female

DRUGS (6)
  1. OLANZAPINE [Suspect]
     Indication: SCHIZOAFFECTIVE DISORDER
     Dosage: 10 MG BID ORAL
     Route: 048
     Dates: start: 20040101, end: 20040710
  2. BUPROPION HCL [Concomitant]
  3. OMEPRAZOLE [Concomitant]
  4. DILTIAZEM [Concomitant]
  5. CHLORDIAZEPOXIDE [Concomitant]
  6. HYDROCHLOROTHIAZIDE [Concomitant]

REACTIONS (6)
  - ASTHENIA [None]
  - FALL [None]
  - FATIGUE [None]
  - HYPEROSMOLAR STATE [None]
  - URINE OUTPUT INCREASED [None]
  - WEIGHT DECREASED [None]
